FAERS Safety Report 21975113 (Version 1)
Quarter: 2023Q1

REPORT INFORMATION
  Report Type: Spontaneous
  Country: PT (occurrence: PT)
  Receive Date: 20230209
  Receipt Date: 20230209
  Transmission Date: 20230418
  Serious: Yes (Hospitalization)
  Sender: FDA-Public Use
  Company Number: PT-STRIDES ARCOLAB LIMITED-2023SP001805

PATIENT
  Age: 66 Year
  Sex: Male

DRUGS (2)
  1. ZOLPIDEM [Suspect]
     Active Substance: ZOLPIDEM TARTRATE
     Indication: Insomnia
     Dosage: UNK (THE PATIENT RECEIVED AN AVERAGE OF 15 TABLETS PER DAY)
     Route: 065
  2. ZOLPIDEM [Suspect]
     Active Substance: ZOLPIDEM TARTRATE
     Indication: Anxiety

REACTIONS (6)
  - Disorientation [Recovered/Resolved]
  - Patient elopement [Recovered/Resolved]
  - Loss of personal independence in daily activities [Recovered/Resolved]
  - Memory impairment [Recovered/Resolved]
  - Drug abuse [Unknown]
  - Off label use [Unknown]
